FAERS Safety Report 17611319 (Version 12)
Quarter: 2020Q2

REPORT INFORMATION
  Report Type: Spontaneous
  Country: CN (occurrence: CN)
  Receive Date: 20200401
  Receipt Date: 20200507
  Transmission Date: 20200713
  Serious: Yes (Life-Threatening, Other)
  Sender: FDA-Public Use
  Company Number: CN-009507513-2003CHN006458

PATIENT
  Sex: Female
  Weight: 60 kg

DRUGS (2)
  1. SINGULAIR [Suspect]
     Active Substance: MONTELUKAST SODIUM
     Dosage: 10 MILLIGRAM, QD
     Route: 048
     Dates: start: 2008, end: 20200308
  2. SINGULAIR [Suspect]
     Active Substance: MONTELUKAST SODIUM
     Dosage: 10 MILLIGRAM, QD
     Route: 048
     Dates: start: 20200331

REACTIONS (62)
  - Erythema multiforme [Unknown]
  - Eating disorder [Not Recovered/Not Resolved]
  - Blood immunoglobulin E increased [Unknown]
  - Immune system disorder [Unknown]
  - Anxiety [Unknown]
  - Rash [Unknown]
  - Myocardial infarction [Unknown]
  - Pleural thickening [Unknown]
  - Feeling abnormal [Unknown]
  - Urinary incontinence [Unknown]
  - Lymphadenopathy [Recovered/Resolved]
  - Palpitations [Unknown]
  - Suicidal behaviour [Unknown]
  - Coagulopathy [Unknown]
  - Inflammation [Unknown]
  - Productive cough [Unknown]
  - Blood pressure fluctuation [Unknown]
  - Lymphadenopathy [Unknown]
  - Gingival abscess [Unknown]
  - Blood glucose abnormal [Unknown]
  - Upper respiratory tract infection [Unknown]
  - Obsessive-compulsive symptom [Unknown]
  - Pruritus [Unknown]
  - Diarrhoea [Unknown]
  - Inappropriate schedule of product administration [Unknown]
  - Drug dependence [Unknown]
  - Platelet disorder [Unknown]
  - Panic attack [Unknown]
  - Pain [Unknown]
  - Pulmonary mass [Unknown]
  - Dysphoria [Not Recovered/Not Resolved]
  - Tremor [Unknown]
  - Product availability issue [Unknown]
  - Haemorrhage [Unknown]
  - Anal incontinence [Unknown]
  - Sleep-related eating disorder [Unknown]
  - Rash vesicular [Unknown]
  - Affect lability [Unknown]
  - Memory impairment [Unknown]
  - Anxiety [Not Recovered/Not Resolved]
  - Angina pectoris [Not Recovered/Not Resolved]
  - Pancreatitis [Unknown]
  - Pharyngitis [Unknown]
  - Anxiety [Unknown]
  - Arthralgia [Unknown]
  - Hostility [Unknown]
  - Insomnia [Not Recovered/Not Resolved]
  - Muscle spasms [Unknown]
  - Depression [Unknown]
  - Abnormal dreams [Unknown]
  - Myalgia [Unknown]
  - Withdrawal syndrome [Unknown]
  - Hypertension [Unknown]
  - Noninfective gingivitis [Unknown]
  - Hypersensitivity [Unknown]
  - Dyspepsia [Unknown]
  - Irritability [Unknown]
  - Aggression [Unknown]
  - Muscle twitching [Unknown]
  - Suicidal ideation [Unknown]
  - Somnambulism [Not Recovered/Not Resolved]
  - Angioedema [Unknown]

NARRATIVE: CASE EVENT DATE: 200909
